FAERS Safety Report 5032705-6 (Version None)
Quarter: 2006Q2

REPORT INFORMATION
  Report Type: 
  Country: None (occurrence: None)
  Receive Date: 20060620
  Receipt Date: 20060620
  Transmission Date: 20061013
  Serious: Yes (Hospitalization)
  Sender: FDA-Public Use
  Company Number: None

PATIENT
  Sex: Male
  Weight: 108.5 kg

DRUGS (2)
  1. CYTARABINE [Suspect]
     Dosage: 16 MG
  2. MITOXANTRONE HYDROCHLORIDE [Suspect]
     Dosage: 96 MG

REACTIONS (5)
  - ACUTE RESPIRATORY DISTRESS SYNDROME [None]
  - NEUTROPENIA [None]
  - RESPIRATORY FAILURE [None]
  - SEPSIS [None]
  - THERAPY NON-RESPONDER [None]
